FAERS Safety Report 5492874-0 (Version None)
Quarter: 2007Q4

REPORT INFORMATION
  Report Type: 
  Country: None (occurrence: None)
  Receive Date: 20071019
  Receipt Date: 20071015
  Transmission Date: 20080405
  Serious: Yes (Hospitalization)
  Sender: FDA-Public Use
  Company Number: 028-20785-07100786

PATIENT
  Age: 51 Year
  Sex: Male

DRUGS (2)
  1. THALOMID [Suspect]
     Indication: MULTIPLE MYELOMA
     Dosage: 200 MG/KG, QD, ORAL
     Route: 048
  2. PREDNISONE TAB [Suspect]
     Indication: MULTIPLE MYELOMA
     Dosage: 10 MG, QD

REACTIONS (8)
  - ANAEMIA [None]
  - BRADYCARDIA [None]
  - LUNG ABSCESS [None]
  - LYMPHOPENIA [None]
  - OPPORTUNISTIC INFECTION [None]
  - ORAL CANDIDIASIS [None]
  - PNEUMONIA LEGIONELLA [None]
  - PONTIAC FEVER [None]
